FAERS Safety Report 24772968 (Version 1)
Quarter: 2024Q4

REPORT INFORMATION
  Report Type: Spontaneous
  Country: IE (occurrence: IE)
  Receive Date: 20241225
  Receipt Date: 20241225
  Transmission Date: 20250115
  Serious: Yes (Other)
  Sender: CHATTEM
  Company Number: IE-MLMSERVICE-20230810-4480175-1

PATIENT
  Age: 67 Year
  Sex: Female

DRUGS (6)
  1. TRIAMCINOLONE ACETONIDE [Suspect]
     Active Substance: TRIAMCINOLONE ACETONIDE
     Indication: Back pain
     Dosage: STEROID INJECTIONS THE SHOULDER AND BACK
     Dates: start: 201904
  2. TRIAMCINOLONE ACETONIDE [Suspect]
     Active Substance: TRIAMCINOLONE ACETONIDE
     Indication: Arthralgia
  3. TRIAMCINOLONE ACETONIDE [Suspect]
     Active Substance: TRIAMCINOLONE ACETONIDE
     Indication: Pain management
  4. BUPIVACAINE [Suspect]
     Active Substance: BUPIVACAINE
     Indication: Arthralgia
     Dosage: STEROID INJECTIONS THE SHOULDER AND BACK
     Dates: start: 201904
  5. BUPIVACAINE [Suspect]
     Active Substance: BUPIVACAINE
     Indication: Back pain
  6. BUPIVACAINE [Suspect]
     Active Substance: BUPIVACAINE
     Indication: Pain management

REACTIONS (2)
  - Rash erythematous [Recovered/Resolved]
  - Type IV hypersensitivity reaction [Recovered/Resolved]

NARRATIVE: CASE EVENT DATE: 20190401
